FAERS Safety Report 8759827 (Version 2)
Quarter: 2015Q1

REPORT INFORMATION
  Report Type: Report from Study
  Country: US (occurrence: US)
  Receive Date: 20120829
  Receipt Date: 20150324
  Transmission Date: 20150721
  Serious: Yes (Death)
  Sender: FDA-Public Use
  Company Number: US-ROCHE-1109717

PATIENT
  Sex: Female

DRUGS (4)
  1. XELODA [Suspect]
     Active Substance: CAPECITABINE
     Indication: BONE CANCER
  2. PAMIDRONATE [Concomitant]
     Active Substance: PAMIDRONATE DISODIUM
  3. XELODA [Suspect]
     Active Substance: CAPECITABINE
     Indication: BREAST CANCER FEMALE
     Dosage: XELODA 500MG 4 TBS BID 14 DAYS ON 7 DAYS OFF
     Route: 048
  4. XELODA [Suspect]
     Active Substance: CAPECITABINE
     Indication: METASTASES TO NERVOUS SYSTEM

REACTIONS (1)
  - Death [Fatal]
